FAERS Safety Report 4562169-8 (Version None)
Quarter: 2005Q1

REPORT INFORMATION
  Report Type: 
  Country: None (occurrence: None)
  Receive Date: 20050121
  Receipt Date: 20050112
  Transmission Date: 20050727
  Serious: Yes (Disabling, Other)
  Sender: FDA-Public Use
  Company Number: DEU-2004-0001193

PATIENT
  Age: 42 Year
  Sex: Male
  Weight: 68 kg

DRUGS (11)
  1. MSI 200 MG MUND(PHARMA)(MORPHINE SULFATE) INJECTABLE [Suspect]
     Indication: PAIN
     Dosage: 23.3 MG, DAILY, EPIDURAL
     Route: 008
     Dates: start: 19981201
  2. MORPHINE [Suspect]
     Indication: PAIN
     Dosage: PRN, ORAL
     Route: 048
  3. BACLOFEN [Concomitant]
  4. AQUAPHOR TABLET (XIPAMIDE) [Concomitant]
  5. ANAFRANIL [Concomitant]
  6. OMEPRAZOLE [Concomitant]
  7. PANZYTRAT (PANCREATIN) [Concomitant]
  8. MCP (METOCLOPRAMIDE HYDROCHLORIDE) [Concomitant]
  9. LAXANS [Concomitant]
  10. LACTULOSE [Concomitant]
  11. FLUNITRAZEPAM (FLUNITRAZEPAM) [Concomitant]

REACTIONS (3)
  - FAILURE OF IMPLANT [None]
  - TOOTH EROSION [None]
  - TOOTH LOSS [None]
